FAERS Safety Report 7203678-2 (Version None)
Quarter: 2010Q4

REPORT INFORMATION
  Report Type: 
  Country: None (occurrence: None)
  Receive Date: 20101230
  Receipt Date: 20101216
  Transmission Date: 20110411
  Serious: Yes (Hospitalization, Other)
  Sender: FDA-Public Use
  Company Number: PHHY2010MX37629

PATIENT
  Sex: Female

DRUGS (6)
  1. DIOVAN [Suspect]
     Indication: HYPERTENSION
     Dosage: 1 DF, QD
     Dates: start: 20070101
  2. MINIPRESS [Concomitant]
     Dosage: UNK,UNK
  3. LASIX [Concomitant]
     Dosage: UNK,UNK
  4. ERDOSTEINE [Concomitant]
     Dosage: UNK,UNK
  5. CEPHALEXIN [Concomitant]
     Dosage: UNK,UNK
  6. BI-EUGLUCON [Concomitant]
     Dosage: UNK,UNK

REACTIONS (10)
  - ARRHYTHMIA [None]
  - CARDIAC PACEMAKER INSERTION [None]
  - CHRONIC OBSTRUCTIVE PULMONARY DISEASE [None]
  - COMA [None]
  - H1N1 INFLUENZA [None]
  - LARYNGEAL GRANULOMA [None]
  - PNEUMONIA [None]
  - RESPIRATORY TRACT INFECTION [None]
  - TRACHEAL OPERATION [None]
  - TRACHEOSTOMY [None]
